FAERS Safety Report 9233890 (Version 1)
Quarter: 2013Q2

REPORT INFORMATION
  Report Type: Spontaneous
  Country: US (occurrence: US)
  Receive Date: 20130416
  Receipt Date: 20130416
  Transmission Date: 20140414
  Serious: No
  Sender: FDA-Public Use
  Company Number: US-MYLANLABS-2012S1016081

PATIENT
  Age: 75 Year
  Sex: Female

DRUGS (5)
  1. METHIMAZOLE TABLETS [Suspect]
     Indication: HYPERTHYROIDISM
     Route: 048
     Dates: start: 201206, end: 201206
  2. METHIMAZOLE TABLETS [Suspect]
     Indication: HYPERTHYROIDISM
     Route: 048
     Dates: start: 201206
  3. COREG [Concomitant]
  4. NORVASC [Concomitant]
  5. HYDROCHLOROTHIAZIDE [Concomitant]

REACTIONS (1)
  - Oedema [Not Recovered/Not Resolved]
